FAERS Safety Report 7564894-3 (Version None)
Quarter: 2011Q2

REPORT INFORMATION
  Report Type: 
  Country: None (occurrence: None)
  Receive Date: 20110622
  Receipt Date: 20110620
  Transmission Date: 20111010
  Serious: Yes (Other)
  Sender: FDA-Public Use
  Company Number: US-MYLANLABS-2011S1002422

PATIENT
  Age: 42 Year
  Sex: Female

DRUGS (10)
  1. DEPAKOTE [Concomitant]
  2. THIAMINE [Concomitant]
  3. TOPAMAX [Concomitant]
  4. CLOZAPINE [Suspect]
     Route: 048
     Dates: start: 20110202, end: 20110204
  5. CLOZAPINE [Suspect]
     Route: 048
     Dates: start: 20110202, end: 20110204
  6. SEROQUEL XR [Concomitant]
  7. LEVOTHYROXINE SODIUM [Concomitant]
  8. CLOZAPINE [Suspect]
     Indication: BIPOLAR DISORDER
     Route: 048
     Dates: start: 20110124, end: 20110201
  9. ZOLOFT [Concomitant]
  10. MULTI-VITAMIN [Concomitant]

REACTIONS (2)
  - GRANULOCYTOPENIA [None]
  - WHITE BLOOD CELL COUNT DECREASED [None]
